FAERS Safety Report 23954167 (Version 2)
Quarter: 2024Q2

REPORT INFORMATION
  Report Type: Report from Study
  Country: US (occurrence: US)
  Receive Date: 20240609
  Receipt Date: 20240628
  Transmission Date: 20240715
  Serious: Yes (Death)
  Sender: FDA-Public Use
  Company Number: US-ABBVIE-5792538

PATIENT
  Sex: Male

DRUGS (1)
  1. CREON [Suspect]
     Active Substance: PANCRELIPASE AMYLASE\PANCRELIPASE LIPASE\PANCRELIPASE PROTEASE
     Indication: Pancreatic carcinoma
     Dosage: FREQUENCY TEXT: 3 CAPSULES A DAY
     Route: 048
     Dates: start: 2023

REACTIONS (1)
  - Pancreatic carcinoma [Fatal]
